FAERS Safety Report 6111961-7 (Version None)
Quarter: 2009Q1

REPORT INFORMATION
  Report Type: 
  Country: None (occurrence: None)
  Receive Date: 20090311
  Receipt Date: 20090303
  Transmission Date: 20090719
  Serious: Yes (Other)
  Sender: FDA-Public Use
  Company Number: US-B.I. PHARMACEUTICALS,INC./RIDGEFIELD-2009-BP-02807YA

PATIENT
  Sex: Male
  Weight: 79 kg

DRUGS (13)
  1. TAMSULOSIN HCL [Suspect]
     Indication: PROSTATOMEGALY
     Route: 048
  2. VIAGRA [Suspect]
     Indication: ERECTILE DYSFUNCTION
     Route: 048
  3. VIAGRA [Suspect]
     Route: 048
  4. VIAGRA [Suspect]
     Route: 048
  5. LIPITOR [Suspect]
     Route: 048
  6. ZOCOR [Suspect]
     Route: 065
  7. SIMVASTATIN [Concomitant]
  8. VYTORIN [Concomitant]
  9. CARDIZEM CD [Concomitant]
  10. ETODOLAC [Concomitant]
  11. LORAZEPAM [Concomitant]
  12. SOTALOL HCL [Concomitant]
  13. ACIPHEX [Concomitant]

REACTIONS (5)
  - DRUG INEFFECTIVE [None]
  - HEART RATE DECREASED [None]
  - MALAISE [None]
  - PHARYNGEAL NEOPLASM [None]
  - UNEVALUABLE EVENT [None]
